FAERS Safety Report 25446653 (Version 4)
Quarter: 2025Q3

REPORT INFORMATION
  Report Type: Spontaneous
  Country: US (occurrence: US)
  Receive Date: 20250617
  Receipt Date: 20250731
  Transmission Date: 20251021
  Serious: No
  Sender: PFIZER
  Company Number: US-PFIZER INC-202500073251

PATIENT
  Age: 12 Year
  Sex: Female

DRUGS (2)
  1. GENOTROPIN [Suspect]
     Active Substance: SOMATROPIN
     Indication: Growth hormone deficiency
     Dosage: 1.6 MG, DAILY (UNDER THE SKIN)
     Route: 058
     Dates: start: 202505
  2. GENOTROPIN [Suspect]
     Active Substance: SOMATROPIN
     Indication: Hypopituitarism

REACTIONS (6)
  - Injection site mass [Unknown]
  - Injection site pain [Unknown]
  - Device leakage [Unknown]
  - Poor quality device used [Unknown]
  - Device delivery system issue [Unknown]
  - Accidental overdose [Unknown]
